FAERS Safety Report 23101983 (Version 3)
Quarter: 2023Q4

REPORT INFORMATION
  Report Type: Spontaneous
  Country: JP (occurrence: JP)
  Receive Date: 20231025
  Receipt Date: 20231201
  Transmission Date: 20240109
  Serious: Yes (Hospitalization)
  Sender: FDA-Public Use
  Company Number: JP-JNJFOC-20231056951

PATIENT
  Age: 77 Year
  Sex: Male
  Weight: 75.8 kg

DRUGS (3)
  1. TRABECTEDIN [Suspect]
     Active Substance: TRABECTEDIN
     Indication: Abdominal neoplasm
     Route: 041
     Dates: start: 20230926, end: 20230926
  2. PEGFILGRASTIM [Concomitant]
     Active Substance: PEGFILGRASTIM
     Dates: start: 20230929
  3. GRANISETRON [Concomitant]
     Active Substance: GRANISETRON
     Dates: end: 20230926

REACTIONS (2)
  - Vascular device infection [Recovered/Resolved]
  - Rhabdomyolysis [Recovered/Resolved]

NARRATIVE: CASE EVENT DATE: 20231008
